FAERS Safety Report 11096674 (Version 4)
Quarter: 2015Q3

REPORT INFORMATION
  Report Type: Spontaneous
  Country: US (occurrence: US)
  Receive Date: 20150507
  Receipt Date: 20150807
  Transmission Date: 20151125
  Serious: Yes (Other)
  Sender: FDA-Public Use
  Company Number: US-ASTRAZENECA-2014SE71157

PATIENT
  Age: 672 Month
  Sex: Female
  Weight: 68.9 kg

DRUGS (69)
  1. PROMETHAZINE/ PHENERGAN [Concomitant]
     Dates: start: 20091012
  2. LOMOTIL [Concomitant]
     Active Substance: ATROPINE SULFATE\DIPHENOXYLATE HYDROCHLORIDE
     Dosage: 2.5 MG-0.025 MG, FOUR TIMES A DAY
     Dates: start: 20121203
  3. ZITHROMAX [Concomitant]
     Active Substance: AZITHROMYCIN DIHYDRATE
     Dates: start: 20090729
  4. NOREL [Concomitant]
     Dates: start: 20091222
  5. JANUVIA [Suspect]
     Active Substance: SITAGLIPTIN PHOSPHATE
     Route: 065
     Dates: start: 20110916
  6. XANAX [Concomitant]
     Active Substance: ALPRAZOLAM
     Dates: start: 20130107
  7. GABAPENTIN. [Concomitant]
     Active Substance: GABAPENTIN
     Route: 048
     Dates: start: 20111010
  8. METFORMIN HCL [Concomitant]
     Active Substance: METFORMIN HYDROCHLORIDE
     Dates: start: 20090929
  9. LOPERAMIDE [Concomitant]
     Active Substance: LOPERAMIDE
     Route: 048
     Dates: start: 20121113
  10. TRAMADOL HCL [Concomitant]
     Active Substance: TRAMADOL HYDROCHLORIDE
     Dates: start: 20111010
  11. CIPRO [Concomitant]
     Active Substance: CIPROFLOXACIN HYDROCHLORIDE
     Dates: start: 20131017
  12. METHYLPREDNISOLONE. [Concomitant]
     Active Substance: METHYLPREDNISOLONE
     Dates: start: 20091030
  13. IPRATROPIUM BR [Concomitant]
     Dates: start: 20100519
  14. BYETTA [Suspect]
     Active Substance: EXENATIDE
     Route: 065
     Dates: start: 201101, end: 201103
  15. BYETTA [Suspect]
     Active Substance: EXENATIDE
     Dosage: 5 MCG/0.02ML
     Route: 065
     Dates: start: 20110331
  16. PAMELOR/ NORTRIPTYLINE [Concomitant]
     Dates: start: 20131220
  17. CELEXA/CITALOPRAM [Concomitant]
     Dates: start: 20111115
  18. PROTONIX/ PANTOPRAZOLE SODIUM [Concomitant]
     Dates: start: 20130311
  19. MORPHINE SULFATE. [Concomitant]
     Active Substance: MORPHINE SULFATE
     Dates: start: 20131025
  20. LORATADINE. [Concomitant]
     Active Substance: LORATADINE
     Dates: start: 20090929
  21. HYDROXYZINE [Concomitant]
     Active Substance: HYDROXYZINE\HYDROXYZINE HYDROCHLORIDE
     Dates: start: 20100216
  22. ALBUTEROL. [Concomitant]
     Active Substance: ALBUTEROL
     Dosage: 0.83 MG/ML
     Dates: start: 20100519
  23. METHOCARBAMOL. [Concomitant]
     Active Substance: METHOCARBAMOL
     Dates: start: 20111003
  24. JANUVIA [Suspect]
     Active Substance: SITAGLIPTIN PHOSPHATE
     Route: 065
     Dates: start: 201103, end: 201110
  25. CREON [Concomitant]
     Active Substance: PANCRELIPASE AMYLASE\PANCRELIPASE LIPASE\PANCRELIPASE PROTEASE
     Dosage: 24000-76000-120000 UNIT
     Dates: start: 20131220
  26. ACTOS [Concomitant]
     Active Substance: PIOGLITAZONE HYDROCHLORIDE
     Dates: start: 20120514
  27. PREDNISONE. [Concomitant]
     Active Substance: PREDNISONE
     Dates: start: 20070309
  28. SULFAMETHOXAZOLE-TMP [Concomitant]
     Active Substance: SULFAMETHOXAZOLE\TRIMETHOPRIM
     Dates: start: 20111012
  29. SERTRALINE HCL/ ZOLOFT [Concomitant]
     Dates: start: 20090929
  30. LUNESTA [Concomitant]
     Active Substance: ESZOPICLONE
     Dates: start: 20091022
  31. LANTUS SOLOSTAR [Concomitant]
     Active Substance: INSULIN GLARGINE
     Dosage: 100 UNIT/ML, 3 ML, EVERY BEDTIME
     Route: 058
     Dates: start: 20120911
  32. REGLAN [Concomitant]
     Active Substance: METOCLOPRAMIDE HYDROCHLORIDE
     Dates: start: 20130523
  33. QUESTRAN [Concomitant]
     Active Substance: CHOLESTYRAMINE
     Dosage: 4 GRAM PACKET
     Dates: start: 20130509
  34. NEXIUM [Concomitant]
     Active Substance: ESOMEPRAZOLE MAGNESIUM
     Dates: start: 20130917
  35. LEVAQUIN [Concomitant]
     Active Substance: LEVOFLOXACIN
     Dates: start: 20031113
  36. PRAMIPEXOLE. [Concomitant]
     Active Substance: PRAMIPEXOLE
     Dates: start: 20111010
  37. ENOXAPARIN [Concomitant]
     Active Substance: ENOXAPARIN
     Route: 058
     Dates: start: 20131025
  38. MAALOX ANTACID [Concomitant]
     Active Substance: ALUMINUM HYDROXIDE\DIMETHICONE\MAGNESIUM HYDROXIDE
     Route: 048
     Dates: start: 20130915
  39. BENTYL/ DICYCLOMINE [Concomitant]
     Route: 048
     Dates: start: 20140901
  40. CEPHALEXIN. [Concomitant]
     Active Substance: CEPHALEXIN
     Dates: start: 20091113
  41. BYETTA [Suspect]
     Active Substance: EXENATIDE
     Dosage: 5 MCG/0.02ML
     Route: 065
     Dates: start: 20110131
  42. BUSPIRONE [Concomitant]
     Active Substance: BUSPIRONE HYDROCHLORIDE
     Dates: start: 20131220
  43. TIZANIDINE. [Concomitant]
     Active Substance: TIZANIDINE
     Dates: start: 20111010
  44. VITAMIN B6 [Concomitant]
     Active Substance: PYRIDOXINE HYDROCHLORIDE
     Dates: start: 20131220
  45. ZINC [Concomitant]
     Active Substance: ZINC\ZINC CHLORIDE
     Dates: start: 20130821
  46. BENZONATATE. [Concomitant]
     Active Substance: BENZONATATE
     Dates: start: 20120406
  47. DILAUDID [Concomitant]
     Active Substance: HYDROMORPHONE HYDROCHLORIDE
     Dosage: 30MG/ 30 ML
     Dates: start: 20130912
  48. LASIX [Concomitant]
     Active Substance: FUROSEMIDE
     Dates: start: 20130913
  49. SULFAMETHOXAZOLE [Concomitant]
     Active Substance: SULFAMETHOXAZOLE
     Dates: start: 20091215
  50. MECLIZINE [Concomitant]
     Active Substance: MECLIZINE\MECLIZINE HYDROCHLORIDE
     Dates: start: 20100304
  51. FEXOFENADINE HCL [Concomitant]
     Active Substance: FEXOFENADINE HYDROCHLORIDE
     Dates: start: 20100304
  52. AMOXICILLIN. [Concomitant]
     Active Substance: AMOXICILLIN
     Dates: start: 20050218
  53. RESTORIL [Concomitant]
     Active Substance: TEMAZEPAM
     Dates: start: 20131220
  54. POTASSIUM CHLORIDE. [Concomitant]
     Active Substance: POTASSIUM CHLORIDE
     Dates: start: 20121113
  55. MUCINEX [Concomitant]
     Active Substance: GUAIFENESIN
     Dates: start: 20120524
  56. CEFDINIR. [Concomitant]
     Active Substance: CEFDINIR
     Dates: start: 20120214
  57. PERIACTIN [Concomitant]
     Active Substance: CYPROHEPTADINE HYDROCHLORIDE
     Route: 048
     Dates: start: 20131025
  58. CARAFATE [Concomitant]
     Active Substance: SUCRALFATE
     Route: 048
     Dates: start: 20140901
  59. IBUPROFEN. [Concomitant]
     Active Substance: IBUPROFEN
     Dates: start: 20090831
  60. LEXAPRO/ESCITALOPRAM [Concomitant]
     Dates: start: 20100225
  61. MAGNESIUM OXIDE. [Concomitant]
     Active Substance: MAGNESIUM OXIDE
     Dates: start: 20100903
  62. SYMBICORT [Concomitant]
     Active Substance: BUDESONIDE\FORMOTEROL FUMARATE DIHYDRATE
     Dosage: 160/4.5 INH
     Dates: start: 20111012
  63. NABUMETONE. [Concomitant]
     Active Substance: NABUMETONE
     Dates: start: 20111010
  64. REQUIP [Concomitant]
     Active Substance: ROPINIROLE HYDROCHLORIDE
     Dates: start: 20130523
  65. ZOFRAN [Concomitant]
     Active Substance: ONDANSETRON HYDROCHLORIDE
     Dates: start: 20121019
  66. OFLOXACIN. [Concomitant]
     Active Substance: OFLOXACIN
     Dates: start: 20111215
  67. INSULIN ASPART [Concomitant]
     Active Substance: INSULIN ASPART
     Dosage: 300 UNITS/ 3 ML, 2-12 UNITS
     Route: 058
     Dates: start: 20131025
  68. ZOSYN [Concomitant]
     Active Substance: PIPERACILLIN SODIUM\TAZOBACTAM SODIUM
     Dates: start: 20131025
  69. NORCO/ LORTAB [Concomitant]
     Dosage: 5/25 MG, EVERY FOUR HOURS
     Route: 048
     Dates: start: 20130917

REACTIONS (6)
  - Bile duct obstruction [Unknown]
  - Jaundice [Unknown]
  - Pancreatic carcinoma metastatic [Unknown]
  - Metastases to lymph nodes [Unknown]
  - Metastases to adrenals [Unknown]
  - Ascites [Unknown]

NARRATIVE: CASE EVENT DATE: 201210
